FAERS Safety Report 7432015-3 (Version None)
Quarter: 2011Q2

REPORT INFORMATION
  Report Type: 
  Country: None (occurrence: None)
  Receive Date: 20110419
  Receipt Date: 20110419
  Transmission Date: 20111010
  Serious: Yes (Hospitalization)
  Sender: FDA-Public Use
  Company Number: None

PATIENT
  Sex: Male
  Weight: 103.4201 kg

DRUGS (16)
  1. GLYBURIDE [Concomitant]
  2. LOPRESSOR [Concomitant]
  3. GABAPENTIN [Concomitant]
  4. OMEPRAZOLE [Concomitant]
  5. AVODART [Concomitant]
  6. NORVASC [Concomitant]
  7. FLOMAX [Concomitant]
  8. NITROSTAT [Concomitant]
  9. PRADAXA [Suspect]
     Indication: ATRIAL FIBRILLATION
     Dosage: 150 MG BID PO
     Route: 048
     Dates: start: 20110408, end: 20110411
  10. CALCITRIOL [Concomitant]
  11. JANUVIA [Concomitant]
  12. ASPIRIN [Concomitant]
  13. ZOCOR [Concomitant]
  14. PERCOCET [Concomitant]
  15. FLEXERIL [Concomitant]
  16. DILTIAZEM CD [Concomitant]

REACTIONS (3)
  - ARTHRALGIA [None]
  - CONDITION AGGRAVATED [None]
  - HAEMATOMA [None]
